FAERS Safety Report 5087826-9 (Version None)
Quarter: 2006Q3

REPORT INFORMATION
  Report Type: 
  Country: None (occurrence: None)
  Receive Date: 20060821
  Receipt Date: 20060821
  Transmission Date: 20061208
  Serious: Yes (Hospitalization)
  Sender: FDA-Public Use
  Company Number: None

PATIENT
  Age: 56 Year
  Sex: Male
  Weight: 131.5431 kg

DRUGS (14)
  1. WARFARIN SODIUM [Suspect]
     Indication: ATRIAL FIBRILLATION
     Dosage: 5 MG DAILY PO
     Route: 048
     Dates: start: 20060428, end: 20060808
  2. SILDENAFIL CITRATE [Concomitant]
  3. HYDROXYZINE [Concomitant]
  4. ALBUTEROL [Concomitant]
  5. POTASSIUM [Concomitant]
  6. SERTRALINE [Concomitant]
  7. DIAPER [Concomitant]
  8. FLUNISOLIDE [Concomitant]
  9. FORMOTEROL [Concomitant]
  10. WARFARIN SODIUM [Concomitant]
  11. FOLIC ACID [Concomitant]
  12. HYDROCHLOROTHIAZIDE [Concomitant]
  13. LISINOPRIL [Concomitant]
  14. METOPROLOL TARTRATE [Concomitant]

REACTIONS (4)
  - CONTUSION [None]
  - FALL [None]
  - INTERNATIONAL NORMALISED RATIO DECREASED [None]
  - PNEUMONIA ASPIRATION [None]
